FAERS Safety Report 7310144-2 (Version None)
Quarter: 2011Q1

REPORT INFORMATION
  Report Type: 
  Country: None (occurrence: None)
  Receive Date: 20110224
  Receipt Date: 20110216
  Transmission Date: 20110831
  Serious: Yes (Hospitalization)
  Sender: FDA-Public Use
  Company Number: JP-ASTELLAS-2011JP001237

PATIENT
  Age: 48 Year
  Sex: Male

DRUGS (16)
  1. ADEFOVIR DIPIVOXIL KIT [Interacting]
     Dosage: 10 MG, QOD
     Route: 048
  2. PREDNISOLONE [Concomitant]
     Dosage: 5 MG, UNKNOWN/D
     Route: 048
  3. PROGRAF [Interacting]
     Dosage: 3 MG, UNKNOWN/D
     Route: 065
  4. METHYLPREDNISOLONE [Concomitant]
     Indication: IMMUNOSUPPRESSION
     Dosage: 500 MG, UNKNOWN/D
     Route: 042
     Dates: start: 20020501
  5. PROGRAF [Interacting]
     Dosage: 2 MG, UNKNOWN/D
     Route: 065
  6. ADEFOVIR DIPIVOXIL KIT [Interacting]
     Dosage: 2.5 MG, UNKNOWN/D
     Route: 048
  7. ADEFOVIR DIPIVOXIL KIT [Interacting]
     Dosage: 10 MG, UNKNOWN/D
     Route: 048
     Dates: start: 20020301
  8. ENTECAVIR [Concomitant]
     Dosage: 1 MG, QOD
     Route: 065
  9. PROGRAF [Suspect]
     Indication: IMMUNOSUPPRESSION
     Dosage: 4.8 MG, UNKNOWN/D
     Route: 065
  10. PREDNISOLONE [Concomitant]
     Dosage: 50 MG, UNKNOWN/D
     Route: 048
  11. PREDNISOLONE [Concomitant]
     Dosage: 10 MG, UNKNOWN/D
     Route: 048
  12. HEPATITIS B IMMUNE GLOBULIN (HUMAN) [Concomitant]
     Dosage: 10000 IU, UNKNOWN/D
     Route: 042
  13. LAMIVUDINE [Concomitant]
     Dosage: 100 MG, UNKNOWN/D
     Route: 048
  14. PREDNISOLONE [Concomitant]
     Indication: IMMUNOSUPPRESSION
     Dosage: 20 MG, UNKNOWN/D
     Route: 048
     Dates: start: 20020501
  15. PREDNISOLONE [Concomitant]
     Dosage: 2.5 MG, UNKNOWN/D
     Route: 048
  16. ADEFOVIR DIPIVOXIL KIT [Interacting]
     Dosage: 5 MG, QOD
     Route: 048

REACTIONS (4)
  - NEPHROPATHY TOXIC [None]
  - DRUG INTERACTION [None]
  - OSTEOMALACIA [None]
  - HYPOPHOSPHATAEMIA [None]
